FAERS Safety Report 21274670 (Version 5)
Quarter: 2024Q4

REPORT INFORMATION
  Report Type: Spontaneous
  Country: US (occurrence: US)
  Receive Date: 20220831
  Receipt Date: 20241112
  Transmission Date: 20250115
  Serious: No
  Sender: PFIZER
  Company Number: US-PFIZER INC-PV202200053159

PATIENT
  Age: 76 Year
  Sex: Female
  Weight: 80.68 kg

DRUGS (2)
  1. INLYTA [Suspect]
     Active Substance: AXITINIB
     Indication: Renal cancer
     Dosage: 5 MG, 2X/DAY [TAKE 5 MG BY MOUTH EVERY 12 HOURS]
     Route: 048
  2. INLYTA [Suspect]
     Active Substance: AXITINIB
     Dosage: 2 MG, 2X/DAY [TAKE 2 MG BY MOUTH 2 TIMES DAILY]
     Route: 048
     Dates: start: 20230718

REACTIONS (2)
  - Oedema peripheral [Unknown]
  - Constipation [Unknown]
